FAERS Safety Report 17478445 (Version 2)
Quarter: 2020Q3

REPORT INFORMATION
  Report Type: Report from Study
  Country: DE (occurrence: DE)
  Receive Date: 20200228
  Receipt Date: 20200803
  Transmission Date: 20201102
  Serious: Yes (Other)
  Sender: FDA-Public Use
  Company Number: DE-JNJFOC-20190634065

PATIENT
  Age: 78 Year
  Sex: Female

DRUGS (1)
  1. SIMPONI [Suspect]
     Active Substance: GOLIMUMAB
     Indication: RHEUMATOID ARTHRITIS
     Route: 058

REACTIONS (6)
  - Pneumonia [Unknown]
  - Fungal skin infection [Not Recovered/Not Resolved]
  - Peripheral swelling [Unknown]
  - Dyschezia [Unknown]
  - Drug intolerance [Unknown]
  - Dysuria [Unknown]
